FAERS Safety Report 6398692-3 (Version None)
Quarter: 2009Q4

REPORT INFORMATION
  Report Type: 
  Country: None (occurrence: None)
  Receive Date: 20091013
  Receipt Date: 20091001
  Transmission Date: 20100525
  Serious: Yes (Other)
  Sender: FDA-Public Use
  Company Number: CA-JNJCH-2009026085

PATIENT
  Sex: Female
  Weight: 13.6 kg

DRUGS (1)
  1. VISINE WORKPLACE [Suspect]
     Indication: ACCIDENTAL EXPOSURE
     Dosage: TEXT:ONCE
     Route: 048
     Dates: start: 20090929, end: 20090929

REACTIONS (5)
  - ACCIDENTAL EXPOSURE [None]
  - EYE ROLLING [None]
  - FATIGUE [None]
  - PRODUCT QUALITY ISSUE [None]
  - SOMNOLENCE [None]
